FAERS Safety Report 7766267-7 (Version None)
Quarter: 2011Q3

REPORT INFORMATION
  Report Type: 
  Country: None (occurrence: None)
  Receive Date: 20110922
  Receipt Date: 20110915
  Transmission Date: 20111222
  Serious: Yes (Hospitalization)
  Sender: FDA-Public Use
  Company Number: US-BIOGENIDEC-2010BI036495

PATIENT
  Age: 61 Year
  Sex: Female
  Weight: 88 kg

DRUGS (2)
  1. TYSABRI [Suspect]
     Route: 042
     Dates: start: 20101109, end: 20101109
  2. TYSABRI [Suspect]
     Indication: MULTIPLE SCLEROSIS
     Route: 042
     Dates: start: 20080619, end: 20100720

REACTIONS (12)
  - OVERWEIGHT [None]
  - ROAD TRAFFIC ACCIDENT [None]
  - LIMB INJURY [None]
  - RIB FRACTURE [None]
  - MUSCULOSKELETAL DISORDER [None]
  - UPPER LIMB FRACTURE [None]
  - FOOT FRACTURE [None]
  - MUSCLE INJURY [None]
  - OEDEMA PERIPHERAL [None]
  - JOINT CREPITATION [None]
  - HAND FRACTURE [None]
  - CONCUSSION [None]
